FAERS Safety Report 5116852-6 (Version None)
Quarter: 2006Q3

REPORT INFORMATION
  Report Type: 
  Country: None (occurrence: None)
  Receive Date: 20060925
  Receipt Date: 20060912
  Transmission Date: 20061208
  Serious: Yes (Hospitalization, Other)
  Sender: FDA-Public Use
  Company Number: 2006109049

PATIENT
  Age: 59 Year
  Sex: Male
  Weight: 108.8633 kg

DRUGS (25)
  1. GABAPENTIN [Suspect]
     Indication: DIABETIC NEUROPATHY
  2. GABAPENTIN [Suspect]
     Indication: MULTIPLE SCLEROSIS
  3. GABAPENTIN [Suspect]
     Indication: NEUROPATHY PERIPHERAL
  4. LYRICA [Suspect]
     Indication: DIABETIC NEUROPATHY
     Dosage: (50 MG)
     Dates: start: 20060101
  5. LYRICA [Suspect]
     Indication: MULTIPLE SCLEROSIS
     Dosage: (50 MG)
     Dates: start: 20060101
  6. LYRICA [Suspect]
     Indication: NEUROPATHY PERIPHERAL
     Dosage: (50 MG)
     Dates: start: 20060101
  7. CYMBALTA [Suspect]
     Indication: DEPRESSION
  8. CYMBALTA [Suspect]
     Indication: NEURALGIA
  9. NEURONTIN [Suspect]
     Indication: DRUG USE FOR UNKNOWN INDICATION
  10. AMITRIPTYLINE HCL [Concomitant]
  11. METFORMIN HCL [Concomitant]
  12. LESCOL [Concomitant]
  13. ZETIA [Concomitant]
  14. BISOPROLOL FUMARATE [Concomitant]
  15. SEROQUEL [Concomitant]
  16. COLCHICINE [Concomitant]
  17. SULFASALAZINE [Concomitant]
  18. BACLOFEN [Concomitant]
  19. NIFEDIPINE [Concomitant]
  20. ADVAIR (FLUTICASONE PROPIONATE, SALMETEROL ZINAFOATE) [Concomitant]
  21. CLONIDINE [Concomitant]
  22. XANAX [Concomitant]
  23. CYCLOSPORINE [Concomitant]
  24. XALATAN [Concomitant]
  25. KETAMINE HCL [Concomitant]

REACTIONS (11)
  - BENIGN PROSTATIC HYPERPLASIA [None]
  - CARDIAC VALVE DISEASE [None]
  - DEPRESSION [None]
  - DRUG EFFECT DECREASED [None]
  - DRUG INEFFECTIVE [None]
  - DRUG TOXICITY [None]
  - GOUT [None]
  - LACRIMATION INCREASED [None]
  - MYOCARDIAL INFARCTION [None]
  - RENAL FAILURE [None]
  - SPONDYLOLYSIS [None]
